FAERS Safety Report 5478635-7 (Version None)
Quarter: 2007Q4

REPORT INFORMATION
  Report Type: 
  Country: None (occurrence: None)
  Receive Date: 20071005
  Receipt Date: 20070927
  Transmission Date: 20080405
  Serious: Yes (Other)
  Sender: FDA-Public Use
  Company Number: US-PFIZER INC-2006052514

PATIENT
  Sex: Female

DRUGS (3)
  1. XALATAN [Suspect]
     Indication: ILL-DEFINED DISORDER
     Dosage: TEXT:UNKNOWN-FREQ:UNKNOWN
     Route: 065
  2. BEXTRA [Suspect]
     Indication: ARTHRALGIA
     Dosage: TEXT:UNKNOWN-FREQ:UNKNOWN
     Route: 065
  3. TRAVATAN [Concomitant]

REACTIONS (4)
  - ARTHRALGIA [None]
  - BLINDNESS [None]
  - EYE HAEMORRHAGE [None]
  - PITUITARY TUMOUR [None]
